FAERS Safety Report 15660917 (Version 1)
Quarter: 2018Q4

REPORT INFORMATION
  Report Type: Spontaneous
  Country: US (occurrence: US)
  Receive Date: 20181127
  Receipt Date: 20181127
  Transmission Date: 20190205
  Serious: No
  Sender: FDA-Public Use
  Company Number: US-APOTEX-2018AP006229

PATIENT
  Sex: Male

DRUGS (2)
  1. CLONAZEPAM. [Suspect]
     Active Substance: CLONAZEPAM
     Indication: PRODUCT USED FOR UNKNOWN INDICATION
     Dosage: UNK
     Route: 065
  2. DIPHENHYDRAMINE. [Suspect]
     Active Substance: DIPHENHYDRAMINE
     Indication: PRODUCT USED FOR UNKNOWN INDICATION
     Dosage: UNK
     Route: 065

REACTIONS (11)
  - Balance disorder [Unknown]
  - Dyskinesia [Unknown]
  - Nystagmus [Unknown]
  - Toxicity to various agents [Unknown]
  - Bradykinesia [Unknown]
  - Muscle twitching [Unknown]
  - Hypokinesia [Unknown]
  - Eyelid ptosis [Unknown]
  - Neurological examination abnormal [Unknown]
  - Hyperaemia [Unknown]
  - Dysarthria [Unknown]
